FAERS Safety Report 6142145-4 (Version None)
Quarter: 2009Q2

REPORT INFORMATION
  Report Type: 
  Country: None (occurrence: None)
  Receive Date: 20090402
  Receipt Date: 20090324
  Transmission Date: 20091009
  Serious: Yes (Hospitalization)
  Sender: FDA-Public Use
  Company Number: DE-MERCK-0903DEU00187

PATIENT
  Age: 31 Year
  Sex: Female
  Weight: 79 kg

DRUGS (12)
  1. ZETIA [Suspect]
     Indication: DYSLIPIDAEMIA
     Route: 048
     Dates: start: 20080301, end: 20090114
  2. ASPIRIN [Suspect]
     Indication: CORONARY ARTERY DISEASE
     Route: 048
     Dates: start: 20080301, end: 20090115
  3. ACETAMINOPHEN [Suspect]
     Indication: PAIN
     Route: 048
     Dates: start: 20080801, end: 20090114
  4. BRIVUDINE [Suspect]
     Indication: HERPES ZOSTER
     Route: 048
     Dates: start: 20090104, end: 20090110
  5. INSULIN, NEUTRAL [Concomitant]
     Indication: TYPE 1 DIABETES MELLITUS
     Route: 051
     Dates: start: 19800101
  6. CANDESARTAN CILEXETIL [Concomitant]
     Indication: HYPERTENSION
     Route: 048
     Dates: start: 20000101, end: 20090114
  7. CALCIUM ACETATE [Concomitant]
     Indication: RENAL FAILURE
     Route: 048
     Dates: start: 20080101
  8. ALFACALCIDOL [Concomitant]
     Indication: OSTEOPOROSIS
     Route: 048
     Dates: start: 20080101
  9. LANTHANUM CARBONATE [Concomitant]
     Indication: RENAL FAILURE
     Route: 048
     Dates: start: 20080501
  10. INSULIN HUMAN, ISOPHANE [Concomitant]
     Indication: TYPE 1 DIABETES MELLITUS
     Route: 051
     Dates: start: 19800101
  11. TORSEMIDE [Concomitant]
     Indication: RENAL FAILURE
     Route: 048
     Dates: start: 20080101
  12. XIPAMIDE [Concomitant]
     Indication: HYPERTENSION
     Route: 048
     Dates: start: 20080801

REACTIONS (4)
  - ALANINE AMINOTRANSFERASE INCREASED [None]
  - ASPARTATE AMINOTRANSFERASE INCREASED [None]
  - BLOOD ALKALINE PHOSPHATASE INCREASED [None]
  - BLOOD LACTATE DEHYDROGENASE INCREASED [None]
